FAERS Safety Report 8796601 (Version 1)
Quarter: 2012Q4

REPORT INFORMATION
  Report Type: 
  Country: US (occurrence: US)
  Receive Date: 20120919
  Receipt Date: 20120919
  Transmission Date: 20130627
  Serious: Yes (Congenital Anomaly, Other)
  Sender: FDA-Public Use
  Company Number: US-BAXTER-2012BAX017284

PATIENT

DRUGS (1)
  1. METRONIDAZOLE [Suspect]
     Indication: DRUG EXPOSURE VIA MOTHER
     Route: 064

REACTIONS (4)
  - Heart disease congenital [Unknown]
  - Congenital central nervous system anomaly [Unknown]
  - Congenital anomaly [Unknown]
  - Foetal exposure during pregnancy [Recovered/Resolved]
